FAERS Safety Report 7391260-6 (Version None)
Quarter: 2011Q2

REPORT INFORMATION
  Report Type: 
  Country: None (occurrence: None)
  Receive Date: 20110404
  Receipt Date: 20110325
  Transmission Date: 20111010
  Serious: Yes (Other)
  Sender: FDA-Public Use
  Company Number: GB-ASTELLAS-2011EU001592

PATIENT
  Age: 73 Year
  Sex: Female

DRUGS (5)
  1. VESICARE [Suspect]
     Dosage: UNK
     Route: 065
  2. RANITIDINE [Suspect]
     Dosage: UNK
     Route: 065
  3. AMITRIPTYLINE [Suspect]
     Dosage: UNK MG, TID
     Route: 065
  4. GABAPENTIN [Suspect]
     Dosage: 600 MG, TID
     Route: 065
  5. OXYCONTIN [Suspect]
     Dosage: UNK
     Route: 065

REACTIONS (1)
  - TRANSIENT ISCHAEMIC ATTACK [None]
